FAERS Safety Report 18572982 (Version 2)
Quarter: 2021Q1

REPORT INFORMATION
  Report Type: Report from Study
  Country: CA (occurrence: CA)
  Receive Date: 20201203
  Receipt Date: 20210106
  Transmission Date: 20210419
  Serious: Yes (Hospitalization, Other)
  Sender: FDA-Public Use
  Company Number: CA-JNJFOC-20201145772

PATIENT
  Age: 70 Year
  Sex: Female
  Weight: 72.64 kg

DRUGS (6)
  1. ROSUVASTATIN. [Suspect]
     Active Substance: ROSUVASTATIN
     Indication: CHEST PAIN
     Route: 065
     Dates: start: 202011
  2. BISOPROLOL [Suspect]
     Active Substance: BISOPROLOL
     Indication: CHEST PAIN
     Route: 065
     Dates: start: 202011
  3. NITROGLYCERIN. [Suspect]
     Active Substance: NITROGLYCERIN
     Indication: CHEST PAIN
     Dosage: 04 MG AS NEEDED
     Route: 065
  4. CLOPIDOGREL [Suspect]
     Active Substance: CLOPIDOGREL BISULFATE
     Indication: CHEST PAIN
     Route: 065
     Dates: start: 202011
  5. ASA [Suspect]
     Active Substance: ASPIRIN
     Indication: CHEST PAIN
     Route: 065
     Dates: start: 202011
  6. STELARA [Suspect]
     Active Substance: USTEKINUMAB
     Indication: CROHN^S DISEASE
     Route: 058
     Dates: start: 20160624

REACTIONS (5)
  - Diarrhoea [Recovered/Resolved]
  - Headache [Unknown]
  - Fatigue [Unknown]
  - Chest pain [Recovered/Resolved]
  - Diverticulitis [Recovered/Resolved]

NARRATIVE: CASE EVENT DATE: 202011
